FAERS Safety Report 24327510 (Version 1)
Quarter: 2024Q3

REPORT INFORMATION
  Report Type: Spontaneous
  Country: US (occurrence: US)
  Receive Date: 20240917
  Receipt Date: 20240917
  Transmission Date: 20241016
  Serious: Yes (Other)
  Sender: MYLAN
  Company Number: US-MYLANLABS-2024M1083681

PATIENT
  Age: 36 Year
  Sex: Male

DRUGS (5)
  1. RIFAMPIN [Suspect]
     Active Substance: RIFAMPIN
     Indication: Lepromatous leprosy
     Dosage: 600 MILLIGRAM, MONTHLY
     Route: 065
  2. MOXIFLOXACIN [Suspect]
     Active Substance: MOXIFLOXACIN
     Indication: Lepromatous leprosy
     Dosage: 400 MILLIGRAM, MONTHLY
     Route: 065
  3. MINOCYCLINE [Suspect]
     Active Substance: MINOCYCLINE HYDROCHLORIDE
     Indication: Lepromatous leprosy
     Dosage: 100 MILLIGRAM, MONTHLY
     Route: 065
  4. THALIDOMIDE [Concomitant]
     Active Substance: THALIDOMIDE
     Indication: Type 2 lepra reaction
     Dosage: UNK
     Route: 065
  5. METHOTREXATE [Concomitant]
     Active Substance: METHOTREXATE
     Indication: Type 2 lepra reaction
     Dosage: UNK
     Route: 065

REACTIONS (2)
  - Type 2 lepra reaction [Unknown]
  - Gastrointestinal disorder [Unknown]
